FAERS Safety Report 7717574 (Version 5)
Quarter: 2013Q3

REPORT INFORMATION
  Report Type: Spontaneous
  Country: US (occurrence: US)
  Receive Date: 20101217
  Receipt Date: 20130703
  Transmission Date: 20140515
  Serious: Yes (Life-Threatening, Hospitalization, Congenital Anomaly, Other)
  Sender: FDA-Public Use
  Company Number: US-PFIZER INC-2010169105

PATIENT
  Sex: Male
  Weight: 3.35 kg

DRUGS (5)
  1. ZOLOFT [Suspect]
     Indication: DEPRESSION
     Dosage: UNK
     Route: 064
     Dates: start: 20030227, end: 2010
  2. EFFEXOR XR [Suspect]
     Indication: DEPRESSION
     Dosage: UNK MG, UNK
     Route: 064
     Dates: start: 20050627, end: 200906
  3. EFFEXOR [Suspect]
     Dosage: UNK
     Route: 064
     Dates: start: 2010
  4. PRENATAL VITAMINS [Concomitant]
     Dosage: UNK
     Route: 064
  5. KEFLEX [Concomitant]
     Dosage: 500 MG, 3X/DAY
     Route: 064
     Dates: start: 20100113

REACTIONS (19)
  - Exposure during pregnancy [Unknown]
  - Transposition of the great vessels [Unknown]
  - Ventricular septal defect [Unknown]
  - Patent ductus arteriosus [Unknown]
  - Atrial septal defect [Unknown]
  - Phimosis [Unknown]
  - Pulmonary artery stenosis congenital [Recovering/Resolving]
  - Pulmonary hypoplasia [Unknown]
  - Pulmonary hypertension [Unknown]
  - Left ventricular hypertrophy [Unknown]
  - Respiratory distress [Unknown]
  - Supraventricular tachycardia [Recovered/Resolved]
  - Cardiomegaly [Unknown]
  - Tachypnoea [Recovering/Resolving]
  - Ecchymosis [Unknown]
  - Eczema [Unknown]
  - Motor dysfunction [Unknown]
  - Viral pharyngitis [Unknown]
  - Ear infection [Unknown]
